FAERS Safety Report 24637354 (Version 1)
Quarter: 2024Q4

REPORT INFORMATION
  Report Type: Spontaneous
  Country: NO (occurrence: NO)
  Receive Date: 20241119
  Receipt Date: 20241119
  Transmission Date: 20250114
  Serious: Yes (Disabling)
  Sender: ELI LILLY AND COMPANY
  Company Number: NO-ELI_LILLY_AND_COMPANY-NO202411009009

PATIENT
  Age: 40 Year
  Sex: Male

DRUGS (1)
  1. STRATTERA [Suspect]
     Active Substance: ATOMOXETINE HYDROCHLORIDE
     Indication: Attention deficit hyperactivity disorder
     Dosage: UNK UNK, UNKNOWN
     Route: 065
     Dates: start: 20160601, end: 20170101

REACTIONS (3)
  - Suicidal ideation [Unknown]
  - Depression [Unknown]
  - Aggression [Unknown]

NARRATIVE: CASE EVENT DATE: 20170101
